FAERS Safety Report 11927449 (Version 2)
Quarter: 2016Q1

REPORT INFORMATION
  Report Type: Other
  Country: GB (occurrence: GB)
  Receive Date: 20160119
  Receipt Date: 20160203
  Transmission Date: 20160526
  Serious: Yes (Life-Threatening)
  Sender: FDA-Public Use
  Company Number: GB-APOTEX-2016AP005057

PATIENT
  Age: 29 Year

DRUGS (1)
  1. MONTELUKAST [Suspect]
     Active Substance: MONTELUKAST SODIUM
     Indication: ASTHMA
     Route: 065

REACTIONS (1)
  - Allergic granulomatous angiitis [Not Recovered/Not Resolved]

NARRATIVE: CASE EVENT DATE: 201403
